FAERS Safety Report 18197631 (Version 2)
Quarter: 2020Q3

REPORT INFORMATION
  Report Type: Spontaneous
  Country: US (occurrence: US)
  Receive Date: 20200826
  Receipt Date: 20200909
  Transmission Date: 20201103
  Serious: Yes (Death, Other)
  Sender: FDA-Public Use
  Company Number: US-GILEAD-2020-0492074

PATIENT
  Age: 80 Year
  Sex: Female
  Weight: 80.3 kg

DRUGS (12)
  1. ENOXAPARIN [Concomitant]
     Active Substance: ENOXAPARIN
  2. MOMENTASONE [Concomitant]
  3. REMDESIVIR. [Suspect]
     Active Substance: REMDESIVIR
     Indication: COVID-19
     Dosage: 100 MG
     Route: 065
     Dates: start: 20200804, end: 20200813
  4. IPRATROPIUM [Concomitant]
     Active Substance: IPRATROPIUM
  5. HYDROMORPHONE [Concomitant]
     Active Substance: HYDROMORPHONE
  6. CEFEPIME [Concomitant]
     Active Substance: CEFEPIME HYDROCHLORIDE
     Dosage: UNK
     Dates: start: 20200814, end: 20200818
  7. MORPHINE [Concomitant]
     Active Substance: MORPHINE
  8. ALBUTEROL HFA [Concomitant]
     Active Substance: ALBUTEROL SULFATE
  9. DEXAMETHASONE. [Concomitant]
     Active Substance: DEXAMETHASONE
  10. LORAZEPAM. [Concomitant]
     Active Substance: LORAZEPAM
  11. NIFEDIPINE. [Concomitant]
     Active Substance: NIFEDIPINE
  12. GUAIFENESIN. [Concomitant]
     Active Substance: GUAIFENESIN

REACTIONS (2)
  - Respiratory failure [Fatal]
  - COVID-19 pneumonia [Fatal]
